FAERS Safety Report 25396810 (Version 1)
Quarter: 2025Q2

REPORT INFORMATION
  Report Type: Spontaneous
  Country: GB (occurrence: GB)
  Receive Date: 20250604
  Receipt Date: 20250604
  Transmission Date: 20250716
  Serious: Yes (Hospitalization, Disabling, Other)
  Sender: TORRENT PHARMA INC.
  Company Number: None

PATIENT
  Sex: Male

DRUGS (1)
  1. QUETIAPINE [Suspect]
     Active Substance: QUETIAPINE
     Indication: Anxiety
     Route: 065

REACTIONS (7)
  - Suicide attempt [Recovering/Resolving]
  - Craniocerebral injury [Recovering/Resolving]
  - Skull fracture [Recovering/Resolving]
  - Scapula fracture [Recovering/Resolving]
  - Soft tissue injury [Recovering/Resolving]
  - Wrist fracture [Recovering/Resolving]
  - Foot fracture [Recovering/Resolving]
